FAERS Safety Report 20717485 (Version 1)
Quarter: 2022Q2

REPORT INFORMATION
  Report Type: Spontaneous
  Country: FR (occurrence: FR)
  Receive Date: 20220417
  Receipt Date: 20220417
  Transmission Date: 20220721
  Serious: Yes (Hospitalization)
  Sender: FDA-Public Use
  Company Number: None

PATIENT
  Age: 73 Year
  Sex: Female
  Weight: 58.2 kg

DRUGS (7)
  1. NITROFURANTOIN [Suspect]
     Active Substance: NITROFURANTOIN
     Indication: Cystitis klebsiella
     Dosage: STRENGTH: 50 MG, DURATION 2 DAYS
     Route: 048
     Dates: start: 20220221, end: 20220223
  2. FLUCONAZOLE [Suspect]
     Active Substance: FLUCONAZOLE
     Indication: Fungal infection
     Dosage: UNIT DOSE: 20 ML, STRENGTH:  200 MG/5 ML, DURATION 18 DAYS
     Route: 048
     Dates: start: 20220207, end: 20220225
  3. LANSOPRAZOLE [Suspect]
     Active Substance: LANSOPRAZOLE
     Indication: Gastrooesophageal reflux disease
     Dosage: UNIT DOSE:  15 MG, THERAPY END DATE : ASKU
     Dates: start: 20220202
  4. ACETAMINOPHEN [Concomitant]
     Active Substance: ACETAMINOPHEN
     Indication: Pain
     Dosage: THERAPY START DATE AND END DATE : ASKU
  5. XANAX [Concomitant]
     Active Substance: ALPRAZOLAM
     Indication: Anxiety
     Dosage: .75 MILLIGRAM DAILY; 0.25 MG MORNING, NOON AND EVENING, THERAPY END DATE : ASKU
     Route: 048
     Dates: start: 20220217
  6. KEPPRA [Concomitant]
     Active Substance: LEVETIRACETAM
     Indication: Epilepsy
     Dosage: 500MG MORNING AND EVENING, THERAPY END DATE : ASKU, STRENGTH: 500 MG, FREQUENCY TIME 12 HRS
     Dates: start: 20211231
  7. METFORMIN HYDROCHLORIDE [Concomitant]
     Active Substance: METFORMIN HYDROCHLORIDE
     Indication: Type 2 diabetes mellitus
     Dosage: THERAPY START DATE : ASKU
     Dates: end: 20220225

REACTIONS (1)
  - Cholestasis [Not Recovered/Not Resolved]

NARRATIVE: CASE EVENT DATE: 20220222
